FAERS Safety Report 5030424-3 (Version None)
Quarter: 2006Q2

REPORT INFORMATION
  Report Type: 
  Country: None (occurrence: None)
  Receive Date: 20060620
  Receipt Date: 20060404
  Transmission Date: 20061013
  Serious: Yes (Hospitalization)
  Sender: FDA-Public Use
  Company Number: FR-BRISTOL-MYERS SQUIBB COMPANY-13338397

PATIENT
  Age: 56 Year
  Sex: Male

DRUGS (3)
  1. HYDREA [Suspect]
     Indication: RED BLOOD CELL COUNT INCREASED
     Route: 048
     Dates: start: 20060213, end: 20060316
  2. FRACTAL [Concomitant]
  3. ASPIRIN [Concomitant]

REACTIONS (2)
  - ECZEMA [None]
  - VIRAL INFECTION [None]
